FAERS Safety Report 7131485-8 (Version None)
Quarter: 2010Q4

REPORT INFORMATION
  Report Type: 
  Country: None (occurrence: None)
  Receive Date: 20101201
  Receipt Date: 20101119
  Transmission Date: 20110411
  Serious: Yes (Other)
  Sender: FDA-Public Use
  Company Number: US-PFIZER INC-2010153631

PATIENT
  Sex: Female

DRUGS (2)
  1. DILANTIN [Suspect]
     Indication: CONVULSION
     Dosage: 100 MG, 2X/DAY
     Route: 048
  2. KEPPRA [Concomitant]
     Indication: CONVULSION
     Dosage: 250 MG, 2X/DAY
     Route: 048

REACTIONS (2)
  - MENSTRUAL DISORDER [None]
  - THYROID DISORDER [None]
